FAERS Safety Report 9863244 (Version 1)
Quarter: 2014Q1

REPORT INFORMATION
  Report Type: Spontaneous
  Country: US (occurrence: US)
  Receive Date: 20140203
  Receipt Date: 20140203
  Transmission Date: 20141002
  Serious: No
  Sender: FDA-Public Use
  Company Number: US-TARO-2012P1068334

PATIENT
  Age: 68 Year
  Sex: Male
  Weight: 120.2 kg

DRUGS (2)
  1. NYSTATIN + TRIAMCINOLONE ACETONIDE CREAM USP [Suspect]
     Indication: RASH
     Dates: start: 2011
  2. BLOOD PRESSURE PILLS (UNSPECIFIED) [Concomitant]

REACTIONS (2)
  - Rash [Not Recovered/Not Resolved]
  - Drug ineffective [Not Recovered/Not Resolved]
